FAERS Safety Report 8859983 (Version 1)
Quarter: 2012Q4

REPORT INFORMATION
  Report Type: 
  Country: GB (occurrence: GB)
  Receive Date: 20121025
  Receipt Date: 20121025
  Transmission Date: 20130627
  Serious: Yes (Other)
  Sender: FDA-Public Use
  Company Number: GB-BAYER-2012-050787

PATIENT
  Age: 44 Year
  Sex: Female

DRUGS (2)
  1. MIRENA [Suspect]
     Indication: ENDOMETRIOSIS
     Dosage: 20 mcg/24hr, CONT
     Route: 015
     Dates: start: 20120517
  2. MIRENA [Suspect]
     Indication: PELVIC PAIN

REACTIONS (22)
  - Device dislocation [Not Recovered/Not Resolved]
  - Mental disorder [None]
  - Vulvovaginal burning sensation [None]
  - Uterine disorder [None]
  - Vulvovaginal discomfort [None]
  - Medical device discomfort [None]
  - Vulvovaginal discomfort [None]
  - Vaginal discharge [None]
  - Feeling abnormal [None]
  - Rash [None]
  - Pain [None]
  - Burning sensation [None]
  - Bladder disorder [None]
  - Pain [None]
  - Pain in extremity [None]
  - Pelvic pain [None]
  - Abdominal pain [None]
  - Uterine pain [Not Recovered/Not Resolved]
  - Aggression [None]
  - Psychopathic personality [None]
  - Ovarian cyst [None]
  - Dyspepsia [None]
